FAERS Safety Report 7043640 (Version 2)
Quarter: 2014Q2

REPORT INFORMATION
  Report Type: Spontaneous
  Country: US (occurrence: None)
  Receive Date: 20090624
  Receipt Date: 20140528
  Transmission Date: 20141212
  Serious: Yes (Hospitalization, Other)
  Sender: FDA-Public Use
  Company Number: 2009S1004776

PATIENT
  Age: 61 Year
  Sex: Female
  Weight: 69.85 kg

DRUGS (11)
  1. FLEET PHOSPHO-SODA ORAL SALINE LAXATIVE, GINGER-LEMON FLAVOR (ORAL SOLUTION) [Suspect]
     Indication: COLONOSCOPY
     Dosage: 90 ML; TOTAL; PO
     Route: 048
     Dates: start: 20081116, end: 20081117
  2. FLEET ENEMA [Suspect]
     Indication: COLONOSCOPY
     Route: 054
     Dates: start: 20081117, end: 20081117
  3. ALEVE (NAPROXEN SODIUM) [Concomitant]
  4. HYDROCHLOROTHIAZIDE/LISINOPRIL (HYDROCHLOROTHIAZIDE, LISINOPRIL) [Concomitant]
  5. NIACIN (NICOTINIC ACID) [Concomitant]
  6. VITAMIN E (TOCOPHEROL) [Concomitant]
  7. CALCIUM CARBONATE (CALCIUM CARBONATE) [Concomitant]
  8. ALLEGRA (FEXOFENADINE HYDROCHLORIDE) [Concomitant]
  9. VERAPAMIL (VERAPAMIL) [Concomitant]
  10. MACROBID (NITROFURANTOIN) [Concomitant]
  11. PLENDIL (FELODIPINE) [Concomitant]

REACTIONS (4)
  - Acute phosphate nephropathy [None]
  - Renal failure chronic [None]
  - Dehydration [None]
  - Blood potassium decreased [None]
